FAERS Safety Report 9085120 (Version 2)
Quarter: 2013Q1

REPORT INFORMATION
  Report Type: Spontaneous
  Country: DE (occurrence: DE)
  Receive Date: 20130130
  Receipt Date: 20130319
  Transmission Date: 20140127
  Serious: Yes (Hospitalization)
  Sender: FDA-Public Use
  Company Number: PHHY2013DE007574

PATIENT
  Sex: Female

DRUGS (4)
  1. EXTAVIA [Suspect]
     Indication: MULTIPLE SCLEROSIS
     Dosage: 250 UG/ML, ONCE EVERY OTHER DAY
     Route: 058
     Dates: start: 2011, end: 201211
  2. IBUPROFEN [Concomitant]
     Indication: ARTHRALGIA
     Dosage: 800 MG, UNK
     Route: 048
     Dates: start: 201211
  3. FLUOXETINE [Concomitant]
     Indication: DEPRESSION
     Dosage: 20 MG/ DAY
     Route: 048
     Dates: start: 2010
  4. FAMPYRA [Concomitant]
     Indication: GAIT DISTURBANCE
     Dosage: 20 MG, DAILY
     Route: 048
     Dates: start: 20120601

REACTIONS (6)
  - Gastrointestinal haemorrhage [Unknown]
  - Autoimmune haemolytic anaemia [Recovered/Resolved]
  - Splenomegaly [Unknown]
  - Faeces discoloured [Unknown]
  - Fatigue [Unknown]
  - Hypertension [Unknown]
